FAERS Safety Report 17136209 (Version 1)
Quarter: 2020Q3

REPORT INFORMATION
  Report Type: Report from Study
  Country: ES (occurrence: ES)
  Receive Date: 20191210
  Receipt Date: 20191210
  Transmission Date: 20201104
  Serious: Yes (Hospitalization, Other)
  Sender: FDA-Public Use
  Company Number: ES-ASTRAZENECA-2019SF51949

PATIENT
  Age: 28097 Day
  Sex: Female
  Weight: 58.3 kg

DRUGS (15)
  1. CALCIUM [Concomitant]
     Active Substance: CALCIUM
     Indication: HYPOPARATHYROIDISM
     Dosage: 500 MG
     Route: 048
  2. PARACETAMOL [Concomitant]
     Active Substance: ACETAMINOPHEN
     Indication: PAIN PROPHYLAXIS
     Dosage: 3 G
     Route: 048
  3. MEGESTROL ACETATE. [Concomitant]
     Active Substance: MEGESTROL ACETATE
     Indication: PROPHYLAXIS
     Dosage: 1600 MG
     Route: 048
  4. ENALAPRIL [Concomitant]
     Active Substance: ENALAPRIL
     Indication: HYPERTENSION
     Dosage: 15 MG
     Route: 048
  5. DURVALUMAB. [Suspect]
     Active Substance: DURVALUMAB
     Indication: THYROID CANCER METASTATIC
     Route: 042
     Dates: start: 20191010
  6. LEVOTHYROXINE. [Concomitant]
     Active Substance: LEVOTHYROXINE
     Indication: HYPOTHYROIDISM
     Dosage: 100 MG
     Route: 048
  7. TREMELIMUMAB. [Suspect]
     Active Substance: TREMELIMUMAB
     Indication: THYROID CANCER METASTATIC
     Route: 042
     Dates: start: 20190717
  8. LERCANIDIPINE [Concomitant]
     Active Substance: LERCANIDIPINE
     Indication: HYPERTENSION
     Dosage: 15 MG
     Route: 048
  9. VITAMIN D [Concomitant]
     Active Substance: VITAMIN D NOS
     Indication: HYPOTHYROIDISM
     Dosage: 0.25 MG
     Route: 048
  10. OMEPRAZOLE. [Concomitant]
     Active Substance: OMEPRAZOLE
     Indication: PROPHYLAXIS
     Dosage: 20 MG
     Route: 048
  11. DURVALUMAB. [Suspect]
     Active Substance: DURVALUMAB
     Indication: THYROID CANCER METASTATIC
     Route: 042
     Dates: start: 20190717
  12. TREMELIMUMAB. [Suspect]
     Active Substance: TREMELIMUMAB
     Indication: THYROID CANCER METASTATIC
     Route: 042
     Dates: start: 20191010
  13. IBUPROFEN. [Concomitant]
     Active Substance: IBUPROFEN
     Indication: PAIN PROPHYLAXIS
     Dosage: 1800 MG
     Route: 048
  14. PREDNICARBATE. [Concomitant]
     Active Substance: PREDNICARBATE
     Indication: RASH
     Route: 061
  15. LOPERAMIDE [Concomitant]
     Active Substance: LOPERAMIDE
     Indication: DIARRHOEA
     Dosage: 2 MG
     Route: 048

REACTIONS (1)
  - Immune-mediated enterocolitis [Recovered/Resolved]

NARRATIVE: CASE EVENT DATE: 20191023
